FAERS Safety Report 12713755 (Version 1)
Quarter: 2016Q3

REPORT INFORMATION
  Report Type: Spontaneous
  Country: US (occurrence: US)
  Receive Date: 20160904
  Receipt Date: 20160904
  Transmission Date: 20161109
  Serious: No
  Sender: FDA-Public Use
  Company Number: US-009507513-1608USA015802

PATIENT
  Age: 28 Year
  Sex: Female

DRUGS (1)
  1. NEXPLANON [Suspect]
     Active Substance: ETONOGESTREL
     Indication: CONTRACEPTION
     Dosage: 3 YEAR IMPLANT
     Route: 059
     Dates: start: 20131018

REACTIONS (6)
  - Breast discharge [Unknown]
  - Weight fluctuation [Unknown]
  - Swelling [Unknown]
  - Back pain [Unknown]
  - Abdominal pain upper [Unknown]
  - Oedema [Unknown]

NARRATIVE: CASE EVENT DATE: 201606
